FAERS Safety Report 16836699 (Version 2)
Quarter: 2020Q1

REPORT INFORMATION
  Report Type: Spontaneous
  Country: US (occurrence: US)
  Receive Date: 20190922
  Receipt Date: 20200213
  Transmission Date: 20200409
  Serious: No
  Sender: FDA-Public Use
  Company Number: US-TEVA-2019-US-1111304

PATIENT
  Age: 44 Year
  Sex: Female
  Weight: 45 kg

DRUGS (7)
  1. AJOVY [Suspect]
     Active Substance: FREMANEZUMAB-VFRM
     Indication: MIGRAINE
     Route: 065
  2. TYLENOL [Concomitant]
     Active Substance: ACETAMINOPHEN
     Indication: NEURALGIA
  3. MAXALT [Concomitant]
     Active Substance: RIZATRIPTAN BENZOATE
     Indication: MIGRAINE
  4. IBUPROFEN. [Concomitant]
     Active Substance: IBUPROFEN
     Indication: NEURALGIA
  5. LORAZEPAM. [Concomitant]
     Active Substance: LORAZEPAM
     Indication: ANXIETY
  6. IBUPROFEN. [Concomitant]
     Active Substance: IBUPROFEN
     Indication: MIGRAINE
  7. TYLENOL [Concomitant]
     Active Substance: ACETAMINOPHEN
     Indication: MIGRAINE

REACTIONS (10)
  - Heart rate increased [Unknown]
  - Wound [Unknown]
  - Fatigue [Unknown]
  - Menstrual disorder [Unknown]
  - Constipation [Unknown]
  - Contusion [Unknown]
  - Vision blurred [Not Recovered/Not Resolved]
  - Rash pruritic [Unknown]
  - Abdominal distension [Unknown]
  - Weight increased [Unknown]

NARRATIVE: CASE EVENT DATE: 201908
